FAERS Safety Report 22110033 (Version 1)
Quarter: 2023Q1

REPORT INFORMATION
  Report Type: Spontaneous
  Country: US (occurrence: US)
  Receive Date: 20230317
  Receipt Date: 20230317
  Transmission Date: 20230417
  Serious: Yes (Other)
  Sender: FDA-Public Use
  Company Number: US-PFIZER INC-202300112493

PATIENT
  Age: 77 Year
  Sex: Female

DRUGS (1)
  1. METHOTREXATE SODIUM [Suspect]
     Active Substance: METHOTREXATE SODIUM
     Dosage: UNK (CHANGED THE DOSE IN HER METHOTREXATE DOSE FROM 6 TO HALF)

REACTIONS (5)
  - Herpes zoster disseminated [Unknown]
  - Pain [Unknown]
  - Spherocytic anaemia [Unknown]
  - Headache [Unknown]
  - Intentional product misuse [Unknown]
